FAERS Safety Report 6828227-X (Version None)
Quarter: 2010Q3

REPORT INFORMATION
  Report Type: 
  Country: None (occurrence: None)
  Receive Date: 20100709
  Receipt Date: 20070201
  Transmission Date: 20110219
  Serious: No
  Sender: FDA-Public Use
  Company Number: US-PFIZER INC-2007009439

PATIENT
  Sex: Female
  Weight: 57.15 kg

DRUGS (14)
  1. CHANTIX [Suspect]
     Indication: SMOKING CESSATION THERAPY
     Dates: start: 20070101
  2. SYNTHROID [Concomitant]
  3. PLAQUENIL [Concomitant]
  4. ZOLOFT [Concomitant]
  5. DRUG, UNSPECIFIED [Concomitant]
  6. PREVACID [Concomitant]
  7. ALLEGRA D 24 HOUR [Concomitant]
  8. ESTROGENS [Concomitant]
  9. VITAMIN E [Concomitant]
  10. VITAMIN C [Concomitant]
  11. CALTRATE + D [Concomitant]
  12. BENADRYL [Concomitant]
  13. COLESTID [Concomitant]
  14. CHROMAGEN FORTE [Concomitant]

REACTIONS (3)
  - HEADACHE [None]
  - NAUSEA [None]
  - VOMITING [None]
